FAERS Safety Report 25530095 (Version 1)
Quarter: 2025Q3

REPORT INFORMATION
  Report Type: Spontaneous
  Country: EU (occurrence: EU)
  Receive Date: 20250708
  Receipt Date: 20250708
  Transmission Date: 20251021
  Serious: Yes (Life-Threatening, Hospitalization)
  Sender: MYLAN
  Company Number: None

PATIENT
  Age: 52 Year
  Sex: Female

DRUGS (16)
  1. PREGABALIN [Interacting]
     Active Substance: PREGABALIN
     Indication: Product used for unknown indication
     Dates: start: 20250312, end: 20250312
  2. PREGABALIN [Interacting]
     Active Substance: PREGABALIN
     Route: 048
     Dates: start: 20250312, end: 20250312
  3. PREGABALIN [Interacting]
     Active Substance: PREGABALIN
     Route: 048
     Dates: start: 20250312, end: 20250312
  4. PREGABALIN [Interacting]
     Active Substance: PREGABALIN
     Dates: start: 20250312, end: 20250312
  5. DIAZEPAM [Interacting]
     Active Substance: DIAZEPAM
     Indication: Product used for unknown indication
     Dates: start: 20250312, end: 20250312
  6. DIAZEPAM [Interacting]
     Active Substance: DIAZEPAM
     Route: 048
     Dates: start: 20250312, end: 20250312
  7. DIAZEPAM [Interacting]
     Active Substance: DIAZEPAM
     Route: 048
     Dates: start: 20250312, end: 20250312
  8. DIAZEPAM [Interacting]
     Active Substance: DIAZEPAM
     Dates: start: 20250312, end: 20250312
  9. PAROXETINE [Interacting]
     Active Substance: PAROXETINE
     Indication: Product used for unknown indication
     Dates: start: 20250312, end: 20250312
  10. PAROXETINE [Interacting]
     Active Substance: PAROXETINE
     Route: 048
     Dates: start: 20250312, end: 20250312
  11. PAROXETINE [Interacting]
     Active Substance: PAROXETINE
     Route: 048
     Dates: start: 20250312, end: 20250312
  12. PAROXETINE [Interacting]
     Active Substance: PAROXETINE
     Dates: start: 20250312, end: 20250312
  13. TRAZODONE HYDROCHLORIDE [Concomitant]
     Active Substance: TRAZODONE HYDROCHLORIDE
     Indication: Depression
     Dosage: 100 MILLIGRAM, QD
     Dates: start: 20250218, end: 20250311
  14. TRAZODONE HYDROCHLORIDE [Concomitant]
     Active Substance: TRAZODONE HYDROCHLORIDE
     Dosage: 100 MILLIGRAM, QD
     Route: 048
     Dates: start: 20250218, end: 20250311
  15. TRAZODONE HYDROCHLORIDE [Concomitant]
     Active Substance: TRAZODONE HYDROCHLORIDE
     Dosage: 100 MILLIGRAM, QD
     Route: 048
     Dates: start: 20250218, end: 20250311
  16. TRAZODONE HYDROCHLORIDE [Concomitant]
     Active Substance: TRAZODONE HYDROCHLORIDE
     Dosage: 100 MILLIGRAM, QD
     Dates: start: 20250218, end: 20250311

REACTIONS (3)
  - Depressed level of consciousness [Recovered/Resolved]
  - Intentional overdose [Recovered/Resolved]
  - Drug interaction [Unknown]

NARRATIVE: CASE EVENT DATE: 20250312
